FAERS Safety Report 24878772 (Version 1)
Quarter: 2025Q1

REPORT INFORMATION
  Report Type: Spontaneous
  Country: US (occurrence: None)
  Receive Date: 20250122
  Receipt Date: 20250122
  Transmission Date: 20250408
  Serious: Yes (Hospitalization)
  Sender: FDA-CTU
  Company Number: None

PATIENT
  Age: 79 Year
  Sex: Male

DRUGS (1)
  1. LOVASTATIN [Suspect]
     Active Substance: LOVASTATIN
     Dates: start: 20240807, end: 20250101

REACTIONS (6)
  - Rhabdomyolysis [None]
  - Influenza [None]
  - Fall [None]
  - Parainfluenzae virus infection [None]
  - Acute kidney injury [None]
  - Condition aggravated [None]

NARRATIVE: CASE EVENT DATE: 20250102
